FAERS Safety Report 7052479-7 (Version None)
Quarter: 2010Q4

REPORT INFORMATION
  Report Type: 
  Country: None (occurrence: None)
  Receive Date: 20101019
  Receipt Date: 20101014
  Transmission Date: 20110411
  Serious: Yes (Other)
  Sender: FDA-Public Use
  Company Number: GR-PFIZER INC-2010130951

PATIENT
  Sex: Female

DRUGS (1)
  1. ALDACTONE [Suspect]
     Indication: FLUID RETENTION
     Dosage: 100 MG, 1X/DAY
     Route: 048
     Dates: start: 20100701

REACTIONS (6)
  - DIARRHOEA [None]
  - DYSURIA [None]
  - HAEMORRHOIDS [None]
  - POLLAKIURIA [None]
  - URINARY TRACT DISORDER [None]
  - VOMITING [None]
